FAERS Safety Report 8489111-1 (Version None)
Quarter: 2012Q3

REPORT INFORMATION
  Report Type: 
  Country: None (occurrence: None)
  Receive Date: 20120705
  Receipt Date: 20120627
  Transmission Date: 20120928
  Serious: Yes (Hospitalization)
  Sender: FDA-Public Use
  Company Number: FR-B.I. PHARMACEUTICALS,INC./RIDGEFIELD-2012-FF-00829FF

PATIENT
  Age: 72 Year
  Sex: Male

DRUGS (5)
  1. COZAAR [Concomitant]
  2. LASIX [Concomitant]
  3. PRADAXA [Suspect]
     Indication: ARRHYTHMIA
     Dosage: 220 MG
     Route: 048
     Dates: start: 20120602, end: 20120608
  4. BISOPROLOL FUMARATE [Concomitant]
  5. ALLOPURINOL [Concomitant]

REACTIONS (1)
  - HEPATIC ENCEPHALOPATHY [None]
